FAERS Safety Report 5126670-0 (Version None)
Quarter: 2006Q4

REPORT INFORMATION
  Report Type: 
  Country: None (occurrence: None)
  Receive Date: 20061012
  Receipt Date: 20061012
  Transmission Date: 20070319
  Serious: Yes (Other)
  Sender: FDA-Public Use
  Company Number: None

PATIENT
  Age: 63 Year
  Sex: Male
  Weight: 78.9 kg

DRUGS (1)
  1. VARDENAFIL [Suspect]
     Indication: ERECTILE DYSFUNCTION
     Dosage: 10 MG, 10 MG, ORAL
     Route: 048
     Dates: start: 20060214, end: 20060630

REACTIONS (1)
  - VISUAL DISTURBANCE [None]
